FAERS Safety Report 15665179 (Version 1)
Quarter: 2018Q4

REPORT INFORMATION
  Report Type: Spontaneous
  Country: US (occurrence: US)
  Receive Date: 20181128
  Receipt Date: 20181128
  Transmission Date: 20190205
  Serious: Yes (Life-Threatening, Hospitalization, Disabling)
  Sender: FDA-Public Use
  Company Number: None

PATIENT
  Sex: Female
  Weight: 53.52 kg

DRUGS (1)
  1. MIRENA [Suspect]
     Active Substance: LEVONORGESTREL
     Indication: DYSFUNCTIONAL UTERINE BLEEDING
     Dates: start: 20180505, end: 20180915

REACTIONS (6)
  - Speech disorder [None]
  - Embedded device [None]
  - Complication of device removal [None]
  - Cerebrovascular accident [None]
  - Product complaint [None]
  - Hypovolaemic shock [None]
